FAERS Safety Report 6611924-9 (Version None)
Quarter: 2010Q1

REPORT INFORMATION
  Report Type: 
  Country: None (occurrence: None)
  Receive Date: 20100226
  Receipt Date: 20100226
  Transmission Date: 20100710
  Serious: Yes (Other)
  Sender: FDA-Public Use
  Company Number: None

PATIENT
  Age: 54 Year

DRUGS (1)
  1. PROLIXIN [Suspect]
     Indication: PARANOIA
     Dates: start: 19910101, end: 20100201

REACTIONS (2)
  - ARTHRITIS [None]
  - PITUITARY TUMOUR [None]
